FAERS Safety Report 16702770 (Version 1)
Quarter: 2019Q3

REPORT INFORMATION
  Report Type: Report from Study
  Country: None (occurrence: GB)
  Receive Date: 20190814
  Receipt Date: 20190814
  Transmission Date: 20191004
  Serious: Yes (Other)
  Sender: FDA-Public Use
  Company Number: GB-ABBVIE-19K-167-2887657-00

PATIENT
  Sex: Male

DRUGS (1)
  1. DUODOPA [Suspect]
     Active Substance: CARBIDOPA\LEVODOPA
     Indication: PARKINSON^S DISEASE
     Dosage: 5MG/1ML 20MG/1ML, 1 CASSETTE DAILY
     Route: 050

REACTIONS (6)
  - Loss of personal independence in daily activities [Unknown]
  - Cardiac operation [Unknown]
  - Joint injury [Unknown]
  - Hyperhidrosis [Unknown]
  - Skin injury [Unknown]
  - Fall [Unknown]

NARRATIVE: CASE EVENT DATE: 2019
